FAERS Safety Report 19874080 (Version 2)
Quarter: 2021Q4

REPORT INFORMATION
  Report Type: Spontaneous
  Country: MX (occurrence: None)
  Receive Date: 20210923
  Receipt Date: 20211217
  Transmission Date: 20220303
  Serious: Yes (Death, Other)
  Sender: FDA-Public Use
  Company Number: 2021A734201

PATIENT
  Age: 62 Year
  Sex: Male

DRUGS (10)
  1. PULMICORT TURBUHALER [Suspect]
     Active Substance: BUDESONIDE
     Indication: Oxygen saturation abnormal
     Route: 055
     Dates: start: 20210903, end: 20210904
  2. IBUPROFEN [Concomitant]
     Active Substance: IBUPROFEN
     Dosage: 400.0MG UNKNOWN
     Route: 065
  3. CEFTRIAXONE [Concomitant]
     Active Substance: CEFTRIAXONE
     Dosage: EVERY 24 HRS (IN SALINE AND FOR 2 HRS)
     Route: 030
  4. DEXAMETHASONE [Concomitant]
     Active Substance: DEXAMETHASONE
     Route: 030
  5. VANCOMYCIN [Concomitant]
     Active Substance: VANCOMYCIN
     Dosage: EVERY 12 HRS (IN 3 HRS).
     Route: 042
  6. ACETAMINOPHEN [Concomitant]
     Active Substance: ACETAMINOPHEN
     Route: 042
  7. METAMIZOLE [Concomitant]
     Active Substance: METAMIZOLE
     Route: 042
  8. FIBROQUEL [Concomitant]
     Dosage: 4 ML 1 ML EVERY 24 HRS IM 4 DAYS
     Route: 030
  9. VITAMIN D [Concomitant]
     Active Substance: VITAMIN D NOS
     Dosage: 4000 U EVERY 24 HOURS ORALLY 9AM
     Route: 048
  10. SINUBERASE [Concomitant]
     Dosage: 1 AMPULE 11 AM 2 WEEKS
     Route: 048

REACTIONS (3)
  - COVID-19 [Fatal]
  - Pneumonitis [Unknown]
  - Hypoxia [Unknown]

NARRATIVE: CASE EVENT DATE: 20210827
